FAERS Safety Report 8074422-4 (Version None)
Quarter: 2012Q1

REPORT INFORMATION
  Report Type: 
  Country: None (occurrence: None)
  Receive Date: 20120126
  Receipt Date: 20120117
  Transmission Date: 20120608
  Serious: Yes (Hospitalization)
  Sender: FDA-Public Use
  Company Number: FR-GLAXOSMITHKLINE-B0775775A

PATIENT
  Sex: Male

DRUGS (20)
  1. GEMZAR [Concomitant]
     Indication: CHEMOTHERAPY
     Dosage: 1540MG PER DAY
     Dates: start: 20110816, end: 20110823
  2. ALPRAZOLAM [Concomitant]
  3. ZOFRAN [Concomitant]
     Dosage: 8MG AS DIRECTED
  4. RED BLOOD CELLS [Concomitant]
     Dates: start: 20110801, end: 20110801
  5. ACETAMINOPHEN [Concomitant]
  6. IMODIUM [Concomitant]
  7. LOVENOX [Concomitant]
     Dosage: .6ML TWICE PER DAY
     Dates: start: 20110815, end: 20110801
  8. STENT PLACEMENT [Concomitant]
     Dates: start: 20110819, end: 20110819
  9. FERROUS GLUCONATE [Concomitant]
  10. OXYCODONE HCL [Concomitant]
  11. CERNEVIT-12 [Concomitant]
  12. PYRIDOXINE HCL [Concomitant]
     Dosage: 250MG PER DAY
  13. TPN [Concomitant]
  14. CISPLATIN [Concomitant]
     Dosage: 55MG PER DAY
     Dates: start: 20110817, end: 20110819
  15. ATENOLOL [Concomitant]
  16. PHLOROGLUCINOL [Concomitant]
     Dosage: 80MG AS DIRECTED
  17. BENERVA [Concomitant]
  18. ARIXTRA [Suspect]
     Indication: SUPERIOR VENA CAVA SYNDROME
     Dosage: 7.5MG PER DAY
     Route: 058
     Dates: start: 20110816, end: 20110824
  19. AOTAL [Concomitant]
  20. METHYLPREDNISOLONE [Concomitant]
     Dosage: 100MG PER DAY

REACTIONS (3)
  - PURPURA [None]
  - THROMBOCYTOPENIA [None]
  - HAEMATOMA [None]
